FAERS Safety Report 4844550-2 (Version None)
Quarter: 2005Q4

REPORT INFORMATION
  Report Type: 
  Country: None (occurrence: None)
  Receive Date: 20051129
  Receipt Date: 20051110
  Transmission Date: 20060501
  Serious: Yes (Other)
  Sender: FDA-Public Use
  Company Number: 219703

PATIENT

DRUGS (1)
  1. AVASTIN [Suspect]

REACTIONS (2)
  - HOT FLUSH [None]
  - HYPERHIDROSIS [None]
